FAERS Safety Report 6942169-0 (Version None)
Quarter: 2010Q3

REPORT INFORMATION
  Report Type: 
  Country: None (occurrence: None)
  Receive Date: 20100826
  Receipt Date: 20100726
  Transmission Date: 20110219
  Serious: No
  Sender: FDA-Public Use
  Company Number: US-BAYER-201018865BCC

PATIENT
  Age: 70 Year
  Sex: Female
  Weight: 113 kg

DRUGS (6)
  1. ALEVE (CAPLET) [Suspect]
     Indication: TOOTHACHE
     Dosage: TOTAL DAILY DOSE: 880 MG  UNIT DOSE: 220 MG
     Route: 048
     Dates: start: 20100701
  2. POTASSIUM [Concomitant]
  3. FUROSEMIDE [Concomitant]
  4. CARVEDILOL [Concomitant]
  5. LIPROXIN [Concomitant]
  6. METFORMIN [Concomitant]

REACTIONS (1)
  - CONSTIPATION [None]
